FAERS Safety Report 10882635 (Version 1)
Quarter: 2015Q1

REPORT INFORMATION
  Report Type: Spontaneous
  Country: US (occurrence: None)
  Receive Date: 20150226
  Receipt Date: 20150226
  Transmission Date: 20150721
  Serious: Yes (Life-Threatening)
  Sender: FDA-Public Use
  Company Number: None

PATIENT
  Age: 65 Year
  Sex: Male
  Weight: 102.06 kg

DRUGS (5)
  1. SIMVASTATIN. [Suspect]
     Active Substance: SIMVASTATIN
     Indication: BLOOD CHOLESTEROL INCREASED
     Dosage: 90 TAB 1 BY MOUTH AT BED TIME
     Route: 048
     Dates: start: 20130901, end: 20140501
  2. SPIRONOLACTONE. [Concomitant]
     Active Substance: SPIRONOLACTONE
  3. FUROSEMIDE. [Concomitant]
     Active Substance: FUROSEMIDE
     Indication: BLOOD CHOLESTEROL INCREASED
     Dosage: 90 TAB 1 BY MOUTH AT BEDTIME
     Route: 048
     Dates: start: 20130901, end: 20140501
  4. CARVEDILOL. [Concomitant]
     Active Substance: CARVEDILOL
  5. LISINOPRIL. [Concomitant]
     Active Substance: LISINOPRIL

REACTIONS (4)
  - Asthenia [None]
  - Nausea [None]
  - Palpitations [None]
  - Angina pectoris [None]

NARRATIVE: CASE EVENT DATE: 20130901
